FAERS Safety Report 7134379-7 (Version None)
Quarter: 2010Q4

REPORT INFORMATION
  Report Type: 
  Country: None (occurrence: None)
  Receive Date: 20101203
  Receipt Date: 20101119
  Transmission Date: 20110411
  Serious: Yes (Other)
  Sender: FDA-Public Use
  Company Number: CA-ELI_LILLY_AND_COMPANY-CA201011005578

PATIENT
  Sex: Female

DRUGS (12)
  1. ZYPREXA [Suspect]
     Indication: BIPOLAR DISORDER
     Dosage: 5 MG, DAILY (1/D)
     Route: 065
     Dates: start: 19980101
  2. ZYPREXA [Suspect]
     Dosage: 12.5 MG, DAILY (1/D)
     Route: 065
  3. ZYPREXA [Suspect]
     Dosage: 15 MG, DAILY (1/D)
     Route: 065
  4. EPIVAL [Concomitant]
     Indication: BIPOLAR DISORDER
     Dosage: 1250 MG, DAILY (1/D)
     Route: 065
  5. SEROQUEL [Concomitant]
     Dosage: UNK, UNKNOWN
     Route: 065
     Dates: start: 20020101
  6. ALTACE [Concomitant]
     Dosage: 5 MG, UNKNOWN
     Route: 065
  7. CLONAZEPAM [Concomitant]
     Dosage: 0.25 MG, UNKNOWN
     Route: 065
  8. SYNTHROID [Concomitant]
     Dosage: 0.05 MG, UNKNOWN
     Route: 065
  9. HYDRA-ZIDE [Concomitant]
     Dosage: 25 MG, UNKNOWN
     Route: 065
  10. MACROBID [Concomitant]
     Dosage: 100 MG, UNKNOWN
     Route: 065
  11. SALBUTAMOL [Concomitant]
     Dosage: 100 UG, UNKNOWN
     Route: 065
  12. FLOVENT [Concomitant]
     Dosage: UNK, UNKNOWN
     Route: 065

REACTIONS (13)
  - BLOOD PRESSURE INCREASED [None]
  - CEREBROVASCULAR ACCIDENT [None]
  - DIABETES MELLITUS INADEQUATE CONTROL [None]
  - EXCORIATION [None]
  - HEPATIC STEATOSIS [None]
  - HYPERLIPIDAEMIA [None]
  - HYPOGLYCAEMIA [None]
  - NEUROPATHY PERIPHERAL [None]
  - OEDEMA PERIPHERAL [None]
  - PROTEINURIA [None]
  - RENAL CYST [None]
  - VENOUS OCCLUSION [None]
  - WEIGHT INCREASED [None]
